FAERS Safety Report 16745702 (Version 1)
Quarter: 2019Q3

REPORT INFORMATION
  Report Type: Spontaneous
  Country: US (occurrence: US)
  Receive Date: 20190827
  Receipt Date: 20190827
  Transmission Date: 20191005
  Serious: No
  Sender: FDA-Public Use
  Company Number: US-009507513-1908USA009400

PATIENT
  Sex: Female

DRUGS (1)
  1. FOSAMAX [Suspect]
     Active Substance: ALENDRONATE SODIUM
     Dosage: UNK
     Dates: start: 20181219, end: 20190809

REACTIONS (3)
  - Gait disturbance [Recovering/Resolving]
  - Musculoskeletal pain [Unknown]
  - Arthralgia [Recovering/Resolving]
